FAERS Safety Report 19872636 (Version 1)
Quarter: 2021Q3

REPORT INFORMATION
  Report Type: Spontaneous
  Country: HU (occurrence: HU)
  Receive Date: 20210922
  Receipt Date: 20210922
  Transmission Date: 20211014
  Serious: Yes (Life-Threatening, Other)
  Sender: FDA-Public Use
  Company Number: HU-MYLANLABS-2021M1064267

PATIENT
  Sex: Female

DRUGS (6)
  1. EPIRUBICIN [Suspect]
     Active Substance: EPIRUBICIN
     Indication: PRODUCT USED FOR UNKNOWN INDICATION
     Dosage: UNK (6 X EC)
     Route: 065
  2. ZOLADEX [Concomitant]
     Active Substance: GOSERELIN ACETATE
     Indication: HORMONE THERAPY
     Dosage: UNK
     Route: 065
     Dates: start: 200903, end: 2011
  3. ZITAZONIUM [Concomitant]
     Active Substance: TAMOXIFEN CITRATE
     Indication: HORMONE THERAPY
     Dosage: UNK
     Route: 065
     Dates: start: 200903, end: 2011
  4. ZOLADEX [Concomitant]
     Active Substance: GOSERELIN ACETATE
     Dosage: UNK
     Route: 065
     Dates: start: 201805, end: 2018
  5. CYCLOPHOSPHAMIDE. [Suspect]
     Active Substance: CYCLOPHOSPHAMIDE
     Indication: PRODUCT USED FOR UNKNOWN INDICATION
     Dosage: UNK (6 X EC)
     Route: 065
  6. EXEMESTANE. [Concomitant]
     Active Substance: EXEMESTANE
     Indication: PRODUCT USED FOR UNKNOWN INDICATION
     Dosage: UNK
     Route: 065
     Dates: start: 201808

REACTIONS (6)
  - Hepatic adenoma [Unknown]
  - Hepatic cyst [Unknown]
  - Metastases to liver [Unknown]
  - Haemangioma of bone [Unknown]
  - Menstruation irregular [Unknown]
  - Breast cancer recurrent [Recovering/Resolving]

NARRATIVE: CASE EVENT DATE: 2011
